FAERS Safety Report 8338837 (Version 3)
Quarter: 2012Q4

REPORT INFORMATION
  Report Type: 
  Country: US (occurrence: US)
  Receive Date: 20120117
  Receipt Date: 20120918
  Transmission Date: 20130627
  Serious: Yes (Other)
  Sender: FDA-Public Use
  Company Number: US-BAYER-2012-003803

PATIENT
  Age: 29 Year
  Sex: Female
  Weight: 54.42 kg

DRUGS (15)
  1. YAZ [Suspect]
     Indication: PREMENSTRUAL SYNDROME
     Dosage: UNK
     Route: 048
     Dates: start: 2004, end: 2009
  2. YASMIN [Suspect]
     Indication: PREMENSTRUAL SYNDROME
     Dosage: UNK
     Dates: start: 2004, end: 2009
  3. PROZAC [Concomitant]
     Indication: DEPRESSION
     Dosage: UNK
     Dates: start: 2006, end: 2009
  4. LISINOPRIL [Concomitant]
     Indication: HYPERTENSION
     Dosage: UNK
  5. TEGRETOL [Concomitant]
     Indication: MOOD ALTERED
     Dosage: UNK
  6. PERCOCET [Concomitant]
     Indication: PAIN
     Dosage: UNK
     Dates: start: 2005
  7. HYDROCODONE [Concomitant]
     Indication: PAIN
     Dosage: UNK
     Dates: start: 2005
  8. TYLENOL [Concomitant]
     Indication: PAIN
     Dosage: UNK
     Dates: start: 2005
  9. ATIVAN [Concomitant]
     Indication: ANXIETY
     Dosage: 1 mg, BID
     Dates: start: 20100410, end: 20100411
  10. IBUPROFEN [Concomitant]
     Indication: PAIN
     Dosage: 200 mg, TID
     Dates: start: 20100420, end: 20100422
  11. ZOFRAN [Concomitant]
  12. CLONAZEPAM [Concomitant]
     Dosage: 1 mg, BID PRN
     Route: 048
     Dates: start: 20100421
  13. PRISTIQ [Concomitant]
     Dosage: 50 mg, daily
     Route: 048
     Dates: start: 20100421
  14. TUMS [Concomitant]
     Dosage: Daily PRN
     Route: 048
     Dates: start: 20100421
  15. TYLENOL PM [Concomitant]
     Dosage: 500/25 mg HS PRN
     Route: 048
     Dates: start: 20100421

REACTIONS (4)
  - Cholecystitis chronic [None]
  - Emotional distress [None]
  - Pain [None]
  - Bipolar disorder [None]
